FAERS Safety Report 17351705 (Version 1)
Quarter: 2020Q1

REPORT INFORMATION
  Report Type: Spontaneous
  Country: DE (occurrence: DE)
  Receive Date: 20200130
  Receipt Date: 20200130
  Transmission Date: 20200409
  Serious: Yes (Other)
  Sender: FDA-Public Use
  Company Number: DE-BAYER-2020-011241

PATIENT
  Sex: Male

DRUGS (2)
  1. PRIMOVIST [Suspect]
     Active Substance: GADOXETATE DISODIUM
     Indication: SCAN WITH CONTRAST
     Dosage: UNK
     Route: 042
  2. PRIMOVIST [Suspect]
     Active Substance: GADOXETATE DISODIUM
     Indication: SCAN WITH CONTRAST
     Dosage: UNK
     Route: 042

REACTIONS (3)
  - Gastric haemorrhage [None]
  - Haemoglobin decreased [None]
  - Intestinal haemorrhage [None]
